FAERS Safety Report 5178908-1 (Version None)
Quarter: 2006Q4

REPORT INFORMATION
  Report Type: 
  Country: None (occurrence: None)
  Receive Date: 20061208
  Receipt Date: 20061127
  Transmission Date: 20070319
  Serious: Yes (Other)
  Sender: FDA-Public Use
  Company Number: SPV1-2006-01871

PATIENT

DRUGS (1)
  1. DAYTRANA [Suspect]
     Dosage: TRANSDERMAL
     Route: 062

REACTIONS (2)
  - APPLICATION SITE ERYTHEMA [None]
  - RASH GENERALISED [None]
